FAERS Safety Report 23544423 (Version 1)
Quarter: 2024Q1

REPORT INFORMATION
  Report Type: Spontaneous
  Country: US (occurrence: None)
  Receive Date: 20240217
  Receipt Date: 20240217
  Transmission Date: 20240410
  Serious: Yes (Disabling)
  Sender: FDA-Public Use
  Company Number: None

PATIENT
  Age: 50 Year
  Sex: Female
  Weight: 73.8 kg

DRUGS (8)
  1. MONTELUKAST [Suspect]
     Active Substance: MONTELUKAST SODIUM
     Indication: Seasonal allergy
     Dosage: OTHER QUANTITY : 1 TABLET(S);?FREQUENCY : DAILY;?
     Dates: start: 20230220, end: 20240209
  2. MONTELUKAST [Suspect]
     Active Substance: MONTELUKAST SODIUM
     Indication: Asthma
  3. Synthroid 100 [Concomitant]
  4. Estrodial 1mg [Concomitant]
  5. Magnesium Reacted [Concomitant]
  6. IRON [Concomitant]
  7. VITAMIN D3 [Concomitant]
  8. Women^s Multivitamin [Concomitant]

REACTIONS (10)
  - Disorientation [None]
  - Palpitations [None]
  - Headache [None]
  - Anxiety [None]
  - Agitation [None]
  - Emotional disorder [None]
  - Vision blurred [None]
  - Myalgia [None]
  - Paraesthesia [None]
  - Therapy cessation [None]

NARRATIVE: CASE EVENT DATE: 20240209
